FAERS Safety Report 4281063-3 (Version None)
Quarter: 2004Q1

REPORT INFORMATION
  Report Type: 
  Country: None (occurrence: None)
  Receive Date: 20040128
  Receipt Date: 20040128
  Transmission Date: 20041129
  Serious: Yes (Hospitalization)
  Sender: FDA-Public Use
  Company Number: None

PATIENT
  Age: 76 Year
  Sex: Female
  Weight: 65.7 kg

DRUGS (3)
  1. NUBAINE 10 MG IV X 1 DOSE 1600 12-27-03 [Suspect]
     Indication: CHEST PAIN
  2. NUBAINE 10 MG IV X 1 DOSE 1600 12-27-03 [Suspect]
     Indication: PNEUMONIA
  3. PHENERGAN 25 MG IV X 1 DOSE 12-27-03 @1600 [Suspect]
     Indication: VENTRICULAR TACHYCARDIA

REACTIONS (2)
  - BLOOD PRESSURE DECREASED [None]
  - RASH MACULO-PAPULAR [None]
